FAERS Safety Report 12134088 (Version 1)
Quarter: 2016Q1

REPORT INFORMATION
  Report Type: Spontaneous
  Country: ES (occurrence: ES)
  Receive Date: 20160301
  Receipt Date: 20160301
  Transmission Date: 20160526
  Serious: Yes (Hospitalization)
  Sender: FDA-Public Use
  Company Number: ES-UNICHEM LABORATORIES LIMITED-UCM201602-000029

PATIENT
  Age: 24 Year
  Sex: Female

DRUGS (1)
  1. ZALEPLON. [Suspect]
     Active Substance: ZALEPLON

REACTIONS (9)
  - Chromaturia [Unknown]
  - Intentional overdose [Unknown]
  - Sinus tachycardia [Unknown]
  - Myoclonus [Unknown]
  - Vomiting [Unknown]
  - Lip discolouration [Unknown]
  - Somnolence [Recovered/Resolved]
  - Hallucination, visual [Unknown]
  - Confusional state [Recovered/Resolved]
